FAERS Safety Report 4954724-8 (Version None)
Quarter: 2006Q1

REPORT INFORMATION
  Report Type: 
  Country: None (occurrence: None)
  Receive Date: 20060322
  Receipt Date: 20060315
  Transmission Date: 20060701
  Serious: Yes (Death, Hospitalization)
  Sender: FDA-Public Use
  Company Number: 200610254BFR

PATIENT
  Age: 76 Year
  Sex: Male

DRUGS (19)
  1. CIPROFLAXACIN [Suspect]
     Indication: SUPERINFECTION
     Dosage: SEE IMAGE
     Route: 048
     Dates: start: 20060116, end: 20060211
  2. CIPROFLAXACIN [Suspect]
     Indication: WOUND INFECTION
     Dosage: SEE IMAGE
     Route: 048
     Dates: start: 20060116, end: 20060211
  3. CIPROFLAXACIN [Suspect]
     Indication: SUPERINFECTION
     Dosage: SEE IMAGE
     Route: 048
     Dates: start: 20051201
  4. CIPROFLAXACIN [Suspect]
     Indication: WOUND INFECTION
     Dosage: SEE IMAGE
     Route: 048
     Dates: start: 20051201
  5. CIPROFLAXACIN [Suspect]
     Indication: SUPERINFECTION
     Dosage: SEE IMAGE
     Route: 048
     Dates: start: 20060101
  6. CIPROFLAXACIN [Suspect]
     Indication: WOUND INFECTION
     Dosage: SEE IMAGE
     Route: 048
     Dates: start: 20060101
  7. REPAGLINIDE [Suspect]
     Dosage: ORAL
     Dates: start: 20060120, end: 20060211
  8. HALDOL [Suspect]
     Dosage: QD, ORAL
     Route: 048
     Dates: start: 20060131
  9. PREDNISONE TAB [Suspect]
     Dosage: 30 MG, QD, ORAL
     Route: 048
     Dates: start: 20060207
  10. FLUCONAZOLE [Suspect]
     Dosage: SEE IMAGE
     Route: 042
     Dates: start: 20060107, end: 20060116
  11. FLUCONAZOLE [Suspect]
     Dosage: SEE IMAGE
     Route: 042
     Dates: start: 20060116, end: 20060211
  12. FORTUM [Concomitant]
  13. AMIKLIN [Concomitant]
  14. ZYVOXID [Concomitant]
  15. ZELITREX [Concomitant]
  16. NEXIUM [Concomitant]
  17. NOVORAPID [Concomitant]
  18. LANTUS [Concomitant]
  19. IMUREL [Concomitant]

REACTIONS (7)
  - ANTIBIOTIC LEVEL ABOVE THERAPEUTIC [None]
  - HEPATIC FUNCTION ABNORMAL [None]
  - HEPATITIS [None]
  - HYPERTHERMIA [None]
  - METABOLIC ACIDOSIS [None]
  - PROTHROMBIN TIME PROLONGED [None]
  - RESPIRATORY FAILURE [None]
